FAERS Safety Report 5104087-2 (Version None)
Quarter: 2006Q3

REPORT INFORMATION
  Report Type: 
  Country: None (occurrence: None)
  Receive Date: 20060913
  Receipt Date: 20060817
  Transmission Date: 20061208
  Serious: Yes (Other)
  Sender: FDA-Public Use
  Company Number: ES-BOEHRINGER INGELHEIM GMBH, GERMANY-2006-DE-04299GD

PATIENT
  Sex: Male

DRUGS (4)
  1. NEVIRAPINE [Suspect]
     Route: 015
  2. ZIDOVUDINE [Suspect]
     Indication: HUMAN IMMUNODEFICIENCY VIRUS TRANSMISSION
     Route: 015
  3. ZIDOVUDINE [Suspect]
     Indication: PROPHYLAXIS
     Route: 048
  4. LAMIVUDINE [Suspect]
     Route: 015

REACTIONS (1)
  - HUMAN IMMUNODEFICIENCY VIRUS TRANSMISSION [None]
